FAERS Safety Report 22233485 (Version 1)
Quarter: 2023Q2

REPORT INFORMATION
  Report Type: Spontaneous
  Country: GB (occurrence: GB)
  Receive Date: 20230420
  Receipt Date: 20230420
  Transmission Date: 20230721
  Serious: Yes (Other)
  Sender: FDA-Public Use
  Company Number: None

PATIENT
  Age: 81 Year
  Sex: Female
  Weight: 95 kg

DRUGS (10)
  1. OMEPRAZOLE [Interacting]
     Active Substance: OMEPRAZOLE
     Dosage: NA
     Dates: start: 2014
  2. METATONE [Concomitant]
  3. INSULIN ASPART [Concomitant]
     Active Substance: INSULIN ASPART
     Dates: start: 2012
  4. DOXAZOSIN [Concomitant]
     Active Substance: DOXAZOSIN MESYLATE
     Dosage: NA
     Dates: start: 2014
  5. METFORMIN [Concomitant]
     Active Substance: METFORMIN HYDROCHLORIDE
  6. FUROSEMIDE [Interacting]
     Active Substance: FUROSEMIDE
     Dosage: NA
     Dates: start: 2020
  7. SIMVASTATIN [Concomitant]
     Active Substance: SIMVASTATIN
     Dosage: NA
     Dates: start: 2012
  8. LOPERAMIDE [Concomitant]
     Active Substance: LOPERAMIDE
     Dosage: NA
     Dates: start: 202205
  9. LISINOPRIL [Concomitant]
     Active Substance: LISINOPRIL
     Indication: Hypertension
     Dosage: INTERMITTENTLY AS SHE THOUGHT IT WAS JUST FOR WHEN SHE HAD LEG SWELLING
     Route: 048
     Dates: start: 20221222, end: 20230223
  10. PANTOPRAZOLE [Interacting]
     Active Substance: PANTOPRAZOLE
     Dosage: NA

REACTIONS (2)
  - Hyponatraemia [Unknown]
  - Drug interaction [Unknown]
